FAERS Safety Report 4986324-8 (Version None)
Quarter: 2006Q2

REPORT INFORMATION
  Report Type: 
  Country: None (occurrence: None)
  Receive Date: 20060428
  Receipt Date: 20051004
  Transmission Date: 20061013
  Serious: Yes (Hospitalization, Other)
  Sender: FDA-Public Use
  Company Number: US-MERCK-0510USA02685

PATIENT
  Age: 75 Year
  Sex: Male
  Weight: 81 kg

DRUGS (1)
  1. VIOXX [Suspect]
     Indication: OSTEOARTHRITIS
     Route: 048
     Dates: start: 20000913, end: 20031218

REACTIONS (8)
  - CEREBRAL ARTERY EMBOLISM [None]
  - CEREBROVASCULAR ACCIDENT [None]
  - COAGULATION TIME SHORTENED [None]
  - HYPOGLYCAEMIA [None]
  - INFLUENZA [None]
  - ISCHAEMIC STROKE [None]
  - METABOLIC ENCEPHALOPATHY [None]
  - PNEUMONIA [None]
